FAERS Safety Report 7921314-4 (Version None)
Quarter: 2011Q4

REPORT INFORMATION
  Report Type: 
  Country: None (occurrence: None)
  Receive Date: 20111117
  Receipt Date: 20111107
  Transmission Date: 20120403
  Serious: Yes (Other)
  Sender: FDA-Public Use
  Company Number: US-BAYER-2011-029527

PATIENT
  Age: 27 Year
  Sex: Female
  Weight: 72 kg

DRUGS (4)
  1. IBUPROFEN [Concomitant]
     Dosage: 800 MG, PRN
     Dates: start: 20000101, end: 20110101
  2. YASMIN [Suspect]
     Indication: PREMENSTRUAL SYNDROME
     Dosage: UNK
     Dates: start: 20030101, end: 20100101
  3. ASCORBIC ACID [Concomitant]
     Dosage: UNK
     Dates: start: 20010101, end: 20100101
  4. ANTIBIOTICS [Concomitant]

REACTIONS (3)
  - CHOLECYSTITIS CHRONIC [None]
  - PAIN [None]
  - GALLBLADDER DISORDER [None]
